FAERS Safety Report 10200604 (Version 1)
Quarter: 2014Q2

REPORT INFORMATION
  Report Type: Spontaneous
  Country: US (occurrence: US)
  Receive Date: 20140528
  Receipt Date: 20140528
  Transmission Date: 20141212
  Serious: Yes (Other)
  Sender: FDA-Public Use
  Company Number: US-ACCORD-023854

PATIENT
  Age: 68 Year
  Sex: Male
  Weight: 29.09 kg

DRUGS (3)
  1. KLONOPIN [Concomitant]
     Indication: ANXIETY
     Route: 048
  2. NEUPRO [Suspect]
     Indication: PARKINSON^S DISEASE
     Dosage: DOSAGE FORM: PATCH
     Route: 061
  3. QUETIAPINE [Interacting]
     Indication: PRODUCT USED FOR UNKNOWN INDICATION
     Route: 048

REACTIONS (4)
  - Restlessness [Not Recovered/Not Resolved]
  - Abnormal behaviour [Not Recovered/Not Resolved]
  - Drug interaction [Unknown]
  - Hallucination [Not Recovered/Not Resolved]
